FAERS Safety Report 15989986 (Version 1)
Quarter: 2019Q1

REPORT INFORMATION
  Report Type: Other
  Country: US (occurrence: US)
  Receive Date: 20190221
  Receipt Date: 20190221
  Transmission Date: 20190418
  Serious: Yes (Other)
  Sender: FDA-Public Use
  Company Number: US-ACORDA-ACO_157217_2019

PATIENT
  Sex: Male

DRUGS (2)
  1. AMPYRA [Suspect]
     Active Substance: DALFAMPRIDINE
     Indication: GAIT DISTURBANCE
     Dosage: UNK
     Route: 048
  2. TYSABRI [Suspect]
     Active Substance: NATALIZUMAB
     Indication: MULTIPLE SCLEROSIS
     Dosage: 300 MG WEEKLY, INFUSED OVER 1 HOUR
     Route: 042
     Dates: start: 2015

REACTIONS (8)
  - Fall [Recovered/Resolved]
  - Ligament rupture [Recovered/Resolved]
  - Gait disturbance [Not Recovered/Not Resolved]
  - Lower limb fracture [Recovered/Resolved]
  - Lower limb fracture [Recovered/Resolved]
  - Memory impairment [Not Recovered/Not Resolved]
  - Condition aggravated [Not Recovered/Not Resolved]
  - Balance disorder [Not Recovered/Not Resolved]

NARRATIVE: CASE EVENT DATE: 2015
